FAERS Safety Report 9435684 (Version 2)
Quarter: 2014Q2

REPORT INFORMATION
  Report Type: Spontaneous
  Country: US (occurrence: US)
  Receive Date: 20130730
  Receipt Date: 20140623
  Transmission Date: 20141212
  Serious: Yes (Other)
  Sender: FDA-Public Use
  Company Number: 2013SA074724

PATIENT
  Age: 39 Year
  Sex: Female

DRUGS (1)
  1. ICY HOT MEDICATED NO MESS APPLICATOR [Suspect]
     Indication: BACK PAIN
     Dates: start: 20130709, end: 20130709

REACTIONS (7)
  - Burns second degree [None]
  - Injury [None]
  - Pain [None]
  - Disability [None]
  - Deformity [None]
  - Anxiety [None]
  - Anhedonia [None]
